FAERS Safety Report 19252857 (Version 1)
Quarter: 2021Q2

REPORT INFORMATION
  Report Type: Report from Study
  Country: None (occurrence: CO)
  Receive Date: 20210513
  Receipt Date: 20210513
  Transmission Date: 20210717
  Serious: Yes (Other)
  Sender: FDA-Public Use
  Company Number: CO-ABBVIE-21K-036-3900698-00

PATIENT
  Age: 51 Year
  Sex: Female
  Weight: 48 kg

DRUGS (2)
  1. HUMIRA [Suspect]
     Active Substance: ADALIMUMAB
     Indication: CROHN^S DISEASE
     Route: 058
  2. HUMIRA [Suspect]
     Active Substance: ADALIMUMAB
     Indication: CROHN^S DISEASE
     Route: 058
     Dates: start: 20160922

REACTIONS (14)
  - Blood calcium decreased [Recovering/Resolving]
  - Dehydration [Recovering/Resolving]
  - Pallor [Recovering/Resolving]
  - Tooth disorder [Recovering/Resolving]
  - Discomfort [Recovering/Resolving]
  - Tooth loss [Recovering/Resolving]
  - Decreased appetite [Recovering/Resolving]
  - Pulpitis dental [Recovered/Resolved]
  - Tooth injury [Recovering/Resolving]
  - Muscle rigidity [Recovering/Resolving]
  - Toothache [Recovered/Resolved]
  - Anal fissure [Recovering/Resolving]
  - Pain [Recovering/Resolving]
  - Diarrhoea [Recovering/Resolving]

NARRATIVE: CASE EVENT DATE: 2020
